FAERS Safety Report 7085726-6 (Version None)
Quarter: 2010Q4

REPORT INFORMATION
  Report Type: 
  Country: None (occurrence: None)
  Receive Date: 20101105
  Receipt Date: 20101025
  Transmission Date: 20110411
  Serious: Yes (Death, Hospitalization, Other)
  Sender: FDA-Public Use
  Company Number: US-SANOFI-AVENTIS-2010SA055033

PATIENT
  Age: 85 Year
  Sex: Male
  Weight: 65 kg

DRUGS (10)
  1. MULTAQ [Suspect]
     Indication: ATRIAL FIBRILLATION
     Route: 048
     Dates: start: 20100827, end: 20100830
  2. COUMADIN [Suspect]
     Route: 065
     Dates: start: 20100801, end: 20100801
  3. LABETALOL HCL [Concomitant]
  4. HUMULIN R [Concomitant]
     Indication: DIABETES MELLITUS
     Dosage: DOSE:5 UNIT(S)
  5. ACETYLSALICYLIC ACID [Concomitant]
     Indication: CORONARY ARTERY DISEASE
  6. ACETYLSALICYLIC ACID [Concomitant]
     Indication: ATRIAL FIBRILLATION
  7. NEXIUM [Concomitant]
  8. FISH OIL [Concomitant]
  9. CALCIFEROL [Concomitant]
  10. SYNTHROID [Concomitant]
     Indication: HYPOTHYROIDISM

REACTIONS (5)
  - HEPATIC ENZYME INCREASED [None]
  - HYPOTENSION [None]
  - INTERNATIONAL NORMALISED RATIO INCREASED [None]
  - OFF LABEL USE [None]
  - SEPTIC SHOCK [None]
